FAERS Safety Report 11047587 (Version 5)
Quarter: 2017Q2

REPORT INFORMATION
  Report Type: Report from Study
  Country: US (occurrence: US)
  Receive Date: 20150420
  Receipt Date: 20170517
  Transmission Date: 20170829
  Serious: Yes (Other)
  Sender: FDA-Public Use
  Company Number: US-SA-2014SA096167

PATIENT
  Age: 44 Year
  Sex: Female

DRUGS (4)
  1. AUBAGIO [Suspect]
     Active Substance: TERIFLUNOMIDE
     Indication: MULTIPLE SCLEROSIS
     Route: 048
     Dates: end: 2015
  2. AUBAGIO [Suspect]
     Active Substance: TERIFLUNOMIDE
     Indication: MULTIPLE SCLEROSIS
     Route: 048
     Dates: start: 20140705
  3. EXELON [Suspect]
     Active Substance: RIVASTIGMINE TARTRATE
     Indication: MULTIPLE SCLEROSIS
     Route: 065
     Dates: start: 20140701
  4. NAPROXEN. [Concomitant]
     Active Substance: NAPROXEN

REACTIONS (15)
  - Clostridium difficile infection [Unknown]
  - Neuralgia [Unknown]
  - Multiple sclerosis [Unknown]
  - Dizziness [Unknown]
  - Memory impairment [Unknown]
  - Condition aggravated [Not Recovered/Not Resolved]
  - Oral herpes [Not Recovered/Not Resolved]
  - Pain in extremity [Not Recovered/Not Resolved]
  - Hemiparesis [Unknown]
  - Diarrhoea [Recovered/Resolved]
  - Alopecia [Not Recovered/Not Resolved]
  - Alopecia [Recovering/Resolving]
  - Balance disorder [Not Recovered/Not Resolved]
  - Weight decreased [Unknown]
  - Pain [Unknown]
